FAERS Safety Report 15353878 (Version 3)
Quarter: 2019Q3

REPORT INFORMATION
  Report Type: Spontaneous
  Country: US (occurrence: US)
  Receive Date: 20180905
  Receipt Date: 20190801
  Transmission Date: 20191004
  Serious: Yes (Hospitalization, Other)
  Sender: FDA-Public Use
  Company Number: US-VIFOR (INTERNATIONAL) INC.-VIT-2018-08664

PATIENT
  Sex: Female

DRUGS (14)
  1. CHOLECALCIFEROL [Concomitant]
     Active Substance: CHOLECALCIFEROL
  2. XARELTO [Concomitant]
     Active Substance: RIVAROXABAN
  3. HYDROCODONE/ACETAMINOPHEN [Concomitant]
     Active Substance: ACETAMINOPHEN\HYDROCODONE
  4. VELTASSA [Suspect]
     Active Substance: PATIROMER
     Indication: HYPERKALAEMIA
     Route: 048
     Dates: start: 20160722
  5. DEPAKOTE [Concomitant]
     Active Substance: DIVALPROEX SODIUM
  6. NEXIUM [Concomitant]
     Active Substance: ESOMEPRAZOLE MAGNESIUM
  7. CALCIUM [Concomitant]
     Active Substance: CALCIUM
  8. WELLBUTRIN [Concomitant]
     Active Substance: BUPROPION HYDROCHLORIDE
  9. NEURONTIN [Concomitant]
     Active Substance: GABAPENTIN
  10. FUROSEMIDE. [Concomitant]
     Active Substance: FUROSEMIDE
  11. VELTASSA [Suspect]
     Active Substance: PATIROMER
     Dosage: 2 PACKETS, UNKNOWN FREQUENCY
     Route: 048
  12. MIRALAX [Concomitant]
     Active Substance: POLYETHYLENE GLYCOL 3350
  13. RISPERDAL [Concomitant]
     Active Substance: RISPERIDONE
  14. METOPROLOL TARTRATE. [Concomitant]
     Active Substance: METOPROLOL TARTRATE

REACTIONS (3)
  - Knee operation [Unknown]
  - Blood potassium increased [Unknown]
  - Hospitalisation [Unknown]
